FAERS Safety Report 18077237 (Version 1)
Quarter: 2020Q3

REPORT INFORMATION
  Report Type: Spontaneous
  Country: DK (occurrence: DK)
  Receive Date: 20200728
  Receipt Date: 20200728
  Transmission Date: 20201103
  Serious: Yes (Other)
  Sender: FDA-Public Use
  Company Number: DK-ACCORD-193163

PATIENT
  Age: 52 Year

DRUGS (2)
  1. METHOTREXATE. [Suspect]
     Active Substance: METHOTREXATE
     Indication: PRODUCT USED FOR UNKNOWN INDICATION
     Dosage: UNK
     Route: 065
  2. ZESSLY [Suspect]
     Active Substance: INFLIXIMAB
     Indication: PSORIATIC ARTHROPATHY
     Dosage: 100 MG, UNK
     Route: 065
     Dates: start: 2019

REACTIONS (8)
  - Flushing [Unknown]
  - Back pain [Unknown]
  - Anaphylactic shock [Unknown]
  - Hypotension [Unknown]
  - Abdominal pain [Unknown]
  - Dyspnoea [Unknown]
  - Chills [Unknown]
  - Oropharyngeal discomfort [Unknown]
